FAERS Safety Report 14351584 (Version 1)
Quarter: 2018Q1

REPORT INFORMATION
  Report Type: Spontaneous
  Country: HR (occurrence: HR)
  Receive Date: 20180104
  Receipt Date: 20180104
  Transmission Date: 20180509
  Serious: Yes (Other)
  Sender: FDA-Public Use
  Company Number: HR-OTSUKA-2017_028282

PATIENT
  Sex: Female

DRUGS (1)
  1. ARIPIPRAZOLE. [Suspect]
     Active Substance: ARIPIPRAZOLE
     Indication: PRODUCT USED FOR UNKNOWN INDICATION
     Dosage: 840 ML, QD
     Route: 048
     Dates: start: 20171015, end: 20171015

REACTIONS (5)
  - Somnolence [Unknown]
  - Loss of consciousness [Unknown]
  - Suicide attempt [Unknown]
  - Intentional overdose [Unknown]
  - Tachycardia [Unknown]

NARRATIVE: CASE EVENT DATE: 20171015
